FAERS Safety Report 4808901-7 (Version None)
Quarter: 2005Q4

REPORT INFORMATION
  Report Type: 
  Country: None (occurrence: None)
  Receive Date: 20051025
  Receipt Date: 20051013
  Transmission Date: 20060501
  Serious: Yes (Hospitalization)
  Sender: FDA-Public Use
  Company Number: PHRM2005FR02725

PATIENT
  Age: 79 Year
  Sex: Male

DRUGS (5)
  1. ZOMETA [Suspect]
     Indication: MULTIPLE MYELOMA
     Dosage: 4 MG, QMO
     Route: 048
     Dates: start: 20030301, end: 20050901
  2. SOTALOL HCL [Concomitant]
  3. DEROXAT [Concomitant]
  4. LEXOMIL [Concomitant]
  5. IMOVANE [Concomitant]

REACTIONS (4)
  - OSTEOLYSIS [None]
  - OSTEONECROSIS [None]
  - PAIN IN JAW [None]
  - TOOTH EXTRACTION [None]
